FAERS Safety Report 18192866 (Version 1)
Quarter: 2020Q3

REPORT INFORMATION
  Report Type: Other
  Country: TW (occurrence: TW)
  Receive Date: 20200825
  Receipt Date: 20200825
  Transmission Date: 20201103
  Serious: Yes (Other)
  Sender: FDA-Public Use
  Company Number: TW-ROCHE-2665135

PATIENT

DRUGS (15)
  1. ALPRAZOLAM. [Suspect]
     Active Substance: ALPRAZOLAM
     Indication: DEMENTIA
     Route: 065
  2. BROTIZOLAM [Suspect]
     Active Substance: BROTIZOLAM
     Indication: DEMENTIA
     Route: 065
  3. CLONAZEPAM. [Suspect]
     Active Substance: CLONAZEPAM
     Indication: DEMENTIA
     Route: 065
  4. DIAZEPAM. [Suspect]
     Active Substance: DIAZEPAM
     Indication: DEMENTIA
     Route: 065
  5. FLUDIAZEPAM [Suspect]
     Active Substance: FLUDIAZEPAM
     Indication: DEMENTIA
     Route: 065
  6. NIMETAZEPAM [Suspect]
     Active Substance: NIMETAZEPAM
     Indication: DEMENTIA
     Route: 065
  7. OXAZOLAM [Suspect]
     Active Substance: OXAZOLAM
     Indication: DEMENTIA
     Route: 065
  8. TRIAZOLAM. [Suspect]
     Active Substance: TRIAZOLAM
     Indication: DEMENTIA
     Route: 065
  9. ZOPICLONE [Suspect]
     Active Substance: ZOPICLONE
     Indication: DEMENTIA
     Route: 065
  10. BROMAZEPAM [Suspect]
     Active Substance: BROMAZEPAM
     Indication: DEMENTIA
     Route: 065
  11. ESTAZOLAM. [Suspect]
     Active Substance: ESTAZOLAM
     Indication: DEMENTIA
     Route: 065
  12. FLURAZEPAM [Suspect]
     Active Substance: FLURAZEPAM HYDROCHLORIDE
     Indication: DEMENTIA
     Route: 065
  13. ZOLPIDEM [Suspect]
     Active Substance: ZOLPIDEM TARTRATE
     Indication: DEMENTIA
     Route: 065
  14. LORAZEPAM. [Suspect]
     Active Substance: LORAZEPAM
     Indication: DEMENTIA
     Route: 065
  15. NORDAZEPAM [Suspect]
     Active Substance: NORDAZEPAM
     Indication: DEMENTIA
     Route: 065

REACTIONS (4)
  - Asthenia [Unknown]
  - Fall [Unknown]
  - Delirium [Unknown]
  - Somnolence [Unknown]
